FAERS Safety Report 4609969-3 (Version None)
Quarter: 2005Q1

REPORT INFORMATION
  Report Type: 
  Country: None (occurrence: None)
  Receive Date: 20050314
  Receipt Date: 20050307
  Transmission Date: 20050727
  Serious: Yes (Hospitalization)
  Sender: FDA-Public Use
  Company Number: 26317

PATIENT
  Age: 78 Year
  Sex: Female

DRUGS (6)
  1. FLECAINIDE ACETATE [Suspect]
     Indication: ATRIAL FLUTTER
     Dosage: 50 MG
     Route: 048
     Dates: start: 20040101, end: 20050107
  2. BRICANYL [Concomitant]
  3. SYMBICORT [Concomitant]
  4. LANSOPRAZOLE [Concomitant]
  5. CO-AMILOFRUSE [Concomitant]
  6. NICORANDIL [Concomitant]

REACTIONS (1)
  - HEPATITIS [None]
